FAERS Safety Report 16317046 (Version 2)
Quarter: 2019Q2

REPORT INFORMATION
  Report Type: Spontaneous
  Country: US (occurrence: US)
  Receive Date: 20190515
  Receipt Date: 20190603
  Transmission Date: 20190711
  Serious: No
  Sender: FDA-Public Use
  Company Number: US-SA-2019SA129050

PATIENT
  Age: 70 Year
  Sex: Female

DRUGS (2)
  1. ZALTRAP [Suspect]
     Active Substance: ZIV-AFLIBERCEPT
     Indication: APPENDIX CANCER
     Dosage: 240 MG, QOW
     Route: 042
     Dates: start: 201710
  2. ZALTRAP [Suspect]
     Active Substance: ZIV-AFLIBERCEPT
     Indication: APPENDIX CANCER
     Dosage: 240 MG, QOW
     Route: 042
     Dates: start: 201710

REACTIONS (2)
  - Incorrect dose administered [Not Recovered/Not Resolved]
  - Product leakage [Recovered/Resolved]

NARRATIVE: CASE EVENT DATE: 20190506
